FAERS Safety Report 8283043-X (Version None)
Quarter: 2012Q2

REPORT INFORMATION
  Report Type: 
  Country: None (occurrence: None)
  Receive Date: 20120413
  Receipt Date: 20120309
  Transmission Date: 20120825
  Serious: Yes (Other)
  Sender: FDA-Public Use
  Company Number: US-ROCHE-1019904

PATIENT
  Sex: Female

DRUGS (4)
  1. COPEGUS [Suspect]
     Indication: HEPATITIS C
     Dates: start: 20110909, end: 20120217
  2. BOCEPREVIR [Suspect]
     Indication: HEPATITIS C
     Dates: start: 20111007, end: 20111130
  3. PROMETHAZINE [Suspect]
     Indication: NAUSEA
  4. PEGINTERFERON ALFA-2A [Suspect]
     Indication: HEPATITIS C
     Dates: start: 20110909, end: 20120217

REACTIONS (15)
  - MIDDLE INSOMNIA [None]
  - SYNCOPE [None]
  - NAUSEA [None]
  - ASTHENIA [None]
  - DRUG INEFFECTIVE [None]
  - FEELING ABNORMAL [None]
  - HYPERHIDROSIS [None]
  - UNEVALUABLE EVENT [None]
  - DYSPNOEA [None]
  - INJECTION SITE REACTION [None]
  - DRUG HYPERSENSITIVITY [None]
  - RED BLOOD CELL COUNT DECREASED [None]
  - SCRATCH [None]
  - WHITE BLOOD CELL COUNT DECREASED [None]
  - DIZZINESS [None]
